FAERS Safety Report 4507297-8 (Version None)
Quarter: 2004Q4

REPORT INFORMATION
  Report Type: 
  Country: None (occurrence: None)
  Receive Date: 20041025
  Receipt Date: 20040507
  Transmission Date: 20050328
  Serious: Yes (Hospitalization)
  Sender: FDA-Public Use
  Company Number: US-JNJFOC-20030602038

PATIENT
  Age: 68 Year
  Sex: Female
  Weight: 76.9754 kg

DRUGS (8)
  1. REMICADE [Suspect]
     Indication: RHEUMATOID ARTHRITIS
     Dosage: 3 MG/KG
     Dates: start: 20020906, end: 20020906
  2. REMICADE [Suspect]
     Indication: RHEUMATOID ARTHRITIS
     Dosage: 3 MG/KG
     Dates: start: 20030527, end: 20030527
  3. REMICADE [Suspect]
     Indication: RHEUMATOID ARTHRITIS
     Dosage: 3 MG/KG
     Dates: start: 20040303, end: 20040303
  4. INDERAL (PROPANOLOL HYDROCHLORIDE) [Concomitant]
  5. METHOTREXATE [Concomitant]
  6. EVOXAC [Concomitant]
  7. FOLIC ACID [Concomitant]
  8. REMICADE [Suspect]
     Dates: start: 20031001, end: 20031001

REACTIONS (5)
  - CHILLS [None]
  - FEELING HOT [None]
  - HEADACHE [None]
  - NOCTURIA [None]
  - PNEUMONIA [None]
